FAERS Safety Report 4938250-8 (Version None)
Quarter: 2006Q1

REPORT INFORMATION
  Report Type: 
  Country: None (occurrence: None)
  Receive Date: 20060309
  Receipt Date: 20060130
  Transmission Date: 20060701
  Serious: Yes (Other)
  Sender: FDA-Public Use
  Company Number: JP-ROCHE-434879

PATIENT
  Age: 4 Year
  Sex: Male
  Weight: 14 kg

DRUGS (3)
  1. TAMIFLU [Suspect]
     Indication: INFLUENZA
     Route: 048
     Dates: start: 20060127
  2. ONON [Concomitant]
     Route: 048
     Dates: start: 20051217
  3. RIZABEN [Concomitant]
     Route: 048
     Dates: start: 20051029

REACTIONS (1)
  - HYPOTHERMIA [None]
